FAERS Safety Report 9731541 (Version 2)
Quarter: 2013Q4

REPORT INFORMATION
  Report Type: Spontaneous
  Country: US (occurrence: US)
  Receive Date: 20131205
  Receipt Date: 20131219
  Transmission Date: 20140711
  Serious: Yes (Other)
  Sender: FDA-Public Use
  Company Number: US-ROCHE-1309398

PATIENT
  Age: 1 Year
  Sex: Male

DRUGS (1)
  1. TAMIFLU [Suspect]
     Indication: INFLUENZA
     Dosage: 45 MG/7.5 ML
     Route: 048
     Dates: start: 20131121, end: 20131122

REACTIONS (5)
  - Aggression [Recovered/Resolved]
  - Hallucination [Recovered/Resolved]
  - Disorientation [Recovered/Resolved]
  - Muscle twitching [Recovered/Resolved]
  - Confusional state [Unknown]
